FAERS Safety Report 17579917 (Version 2)
Quarter: 2020Q1

REPORT INFORMATION
  Report Type: Spontaneous
  Country: RO (occurrence: RO)
  Receive Date: 20200325
  Receipt Date: 20200331
  Transmission Date: 20200409
  Serious: Yes (Other)
  Sender: FDA-Public Use
  Company Number: RO-CELLTRION INC.-2019RO027053

PATIENT

DRUGS (14)
  1. SIMPONI [Suspect]
     Active Substance: GOLIMUMAB
     Dosage: UNK
  2. SULFASALAZINE. [Suspect]
     Active Substance: SULFASALAZINE
     Indication: ANKYLOSING SPONDYLITIS
     Dosage: UNK
     Route: 065
     Dates: start: 200605
  3. REMSIMA [Suspect]
     Active Substance: INFLIXIMAB
     Dosage: 2 INFUSIONS
     Dates: start: 2017
  4. DICLOFENAC [Suspect]
     Active Substance: DICLOFENAC
     Indication: ANKYLOSING SPONDYLITIS
     Dosage: UNK
     Route: 065
     Dates: start: 2011
  5. ENBREL [Suspect]
     Active Substance: ETANERCEPT
     Indication: ANKYLOSING SPONDYLITIS
     Dosage: 50 MG, 1 AMPULE PER WEEK
     Route: 065
     Dates: start: 2011
  6. CIMZIA [Suspect]
     Active Substance: CERTOLIZUMAB PEGOL
     Indication: ANKYLOSING SPONDYLITIS
     Dosage: 200 MG, 1 AMPULE EVERY 2 WEEKS
     Route: 065
  7. REMSIMA [Suspect]
     Active Substance: INFLIXIMAB
     Dosage: UNK
  8. SOLU-MEDROL [Suspect]
     Active Substance: METHYLPREDNISOLONE SODIUM SUCCINATE
     Indication: ANKYLOSING SPONDYLITIS
     Dosage: PULSE THERAPY
     Dates: start: 200606
  9. HUMIRA [Suspect]
     Active Substance: ADALIMUMAB
     Indication: ANKYLOSING SPONDYLITIS
     Dosage: 40 MG, 1 AMPULE EVERY 2 WEEKS
     Route: 065
     Dates: start: 200701
  10. MELOXICAM. [Suspect]
     Active Substance: MELOXICAM
     Indication: ANKYLOSING SPONDYLITIS
     Dosage: UNK
     Route: 065
     Dates: start: 200605
  11. BUDENOFALK [Suspect]
     Active Substance: BUDESONIDE
     Indication: ANKYLOSING SPONDYLITIS
     Dosage: UNK
     Route: 065
  12. METHOTREXATE. [Suspect]
     Active Substance: METHOTREXATE
     Indication: ANKYLOSING SPONDYLITIS
     Dosage: UNK
     Route: 065
     Dates: start: 200605
  13. REMSIMA [Suspect]
     Active Substance: INFLIXIMAB
     Indication: ANKYLOSING SPONDYLITIS
     Dosage: UNK
     Route: 065
  14. SOLU-MEDROL [Suspect]
     Active Substance: METHYLPREDNISOLONE SODIUM SUCCINATE
     Dosage: UNK
     Route: 065

REACTIONS (13)
  - Osteonecrosis [Unknown]
  - Diarrhoea [Unknown]
  - Diarrhoea haemorrhagic [Unknown]
  - Therapy cessation [Unknown]
  - Headache [Unknown]
  - Uveitis [Unknown]
  - Vomiting [Unknown]
  - Dyspnoea [Unknown]
  - Hypersensitivity [Unknown]
  - Drug ineffective [Unknown]
  - Arrhythmia [Unknown]
  - Chills [Unknown]
  - Anaemia [Unknown]

NARRATIVE: CASE EVENT DATE: 2017
